FAERS Safety Report 6096357-9 (Version None)
Quarter: 2009Q1

REPORT INFORMATION
  Report Type: 
  Country: None (occurrence: None)
  Receive Date: 20090227
  Receipt Date: 20090123
  Transmission Date: 20090719
  Serious: Yes (Hospitalization)
  Sender: FDA-Public Use
  Company Number: A0757441A

PATIENT
  Sex: Male
  Weight: 118.2 kg

DRUGS (22)
  1. LAMICTAL [Suspect]
     Indication: BIPOLAR DISORDER
     Route: 048
     Dates: start: 20080619
  2. FUROSEMIDE [Concomitant]
  3. METOLAZONE [Concomitant]
     Dosage: 2.5MG ALTERNATE DAYS
  4. POTASSIUM CHLORIDE [Concomitant]
     Dosage: 60MEQ TWICE PER DAY
  5. NORVASC [Concomitant]
     Dosage: 10MG PER DAY
  6. QUINAPRIL [Concomitant]
     Dosage: 40MG PER DAY
  7. TOPROL-XL [Concomitant]
     Dosage: 100MG TWICE PER DAY
  8. LANTUS [Concomitant]
     Dosage: 65UNIT PER DAY
  9. NOVOLOG [Concomitant]
  10. ALPHA LIPOIC ACID [Concomitant]
     Dosage: 400MG TWICE PER DAY
  11. ACETYLCARNITINE [Concomitant]
     Dosage: 1000MG TWICE PER DAY
  12. ENTERIC ASPIRIN [Concomitant]
  13. VITAMIN [Concomitant]
  14. UREA [Concomitant]
     Indication: DRY SKIN
  15. ASCORBIC ACID [Concomitant]
     Dosage: 1000IU PER DAY
  16. VITAMIN E [Concomitant]
     Dosage: 400IU PER DAY
  17. VITAMIN D [Concomitant]
     Dosage: 1000IU PER DAY
  18. LOVAZA [Concomitant]
     Dosage: 1200UNIT PER DAY
  19. ALEVE [Concomitant]
     Dosage: 220MG TWICE PER DAY
  20. IMODIUM [Concomitant]
  21. VICODIN [Concomitant]
  22. ULTRAM [Concomitant]
     Indication: PAIN

REACTIONS (2)
  - RASH GENERALISED [None]
  - STEVENS-JOHNSON SYNDROME [None]
